FAERS Safety Report 15400166 (Version 3)
Quarter: 2019Q2

REPORT INFORMATION
  Report Type: Spontaneous
  Country: ES (occurrence: ES)
  Receive Date: 20180919
  Receipt Date: 20190513
  Transmission Date: 20190711
  Serious: Yes (Other)
  Sender: FDA-Public Use
  Company Number: ES-ACCORD-072703

PATIENT
  Age: 72 Year
  Sex: Female

DRUGS (2)
  1. PACLITAXEL/PACLITAXEL LIPOSOME [Suspect]
     Active Substance: PACLITAXEL
     Indication: OVARIAN EPITHELIAL CANCER
  2. CARBOPLATIN. [Concomitant]
     Active Substance: CARBOPLATIN
     Indication: OVARIAN EPITHELIAL CANCER
     Dosage: 4 CYCLES OF NEOADJUVANT CHEMOTHERAPY

REACTIONS (2)
  - Systemic scleroderma [Unknown]
  - Pneumonitis [Recovering/Resolving]
